FAERS Safety Report 17544546 (Version 8)
Quarter: 2020Q2

REPORT INFORMATION
  Report Type: Spontaneous
  Country: US (occurrence: US)
  Receive Date: 20200316
  Receipt Date: 20200630
  Transmission Date: 20200713
  Serious: Yes (Other)
  Sender: FDA-Public Use
  Company Number: NVSC2020US074796

PATIENT
  Sex: Female

DRUGS (1)
  1. ZOFRAN [Suspect]
     Active Substance: ONDANSETRON HYDROCHLORIDE
     Indication: MORNING SICKNESS
     Dosage: 08 MG, TID
     Route: 048
     Dates: start: 20130715, end: 20140314

REACTIONS (13)
  - Maternal exposure during pregnancy [Unknown]
  - Constipation [Unknown]
  - Depression [Unknown]
  - Increased appetite [Unknown]
  - Emotional distress [Unknown]
  - Anhedonia [Unknown]
  - Premature labour [Unknown]
  - Anxiety [Unknown]
  - Foetal hypokinesia [Unknown]
  - Pain [Unknown]
  - Iron deficiency anaemia [Unknown]
  - Weight increased [Unknown]
  - Product use in unapproved indication [Unknown]
